FAERS Safety Report 8033510-9 (Version None)
Quarter: 2012Q1

REPORT INFORMATION
  Report Type: 
  Country: None (occurrence: None)
  Receive Date: 20120110
  Receipt Date: 20120106
  Transmission Date: 20120608
  Serious: Yes (Other)
  Sender: FDA-Public Use
  Company Number: US-BAYER-2011-113765

PATIENT
  Sex: Female
  Weight: 125.2 kg

DRUGS (3)
  1. MIRENA [Suspect]
     Indication: CONTRACEPTION
     Dosage: 20 MCG/24HR, CONT
     Dates: start: 20100916, end: 20111128
  2. CYTOTEC [Concomitant]
  3. MIRENA [Suspect]
     Dosage: 20 MCG/24HR, CONT
     Route: 015

REACTIONS (4)
  - COMPLICATION OF DEVICE REMOVAL [None]
  - DEVICE EXPULSION [None]
  - GENITAL HAEMORRHAGE [None]
  - PAIN [None]
